FAERS Safety Report 12507352 (Version 2)
Quarter: 2021Q3

REPORT INFORMATION
  Report Type: Other
  Country: US (occurrence: US)
  Receive Date: 20160629
  Receipt Date: 20210906
  Transmission Date: 20211014
  Serious: Yes (Other)
  Sender: FDA-Public Use
  Company Number: US-ROCHE-1781492

PATIENT
  Sex: Female
  Weight: 52.66 kg

DRUGS (3)
  1. XOLAIR [Suspect]
     Active Substance: OMALIZUMAB
     Indication: ASTHMA
     Route: 058
     Dates: end: 20090107
  2. XOLAIR [Suspect]
     Active Substance: OMALIZUMAB
     Indication: ASTHMA
     Dosage: DOT: 10/DEC/2020
     Route: 058
  3. XOLAIR [Suspect]
     Active Substance: OMALIZUMAB

REACTIONS (8)
  - Anaphylactic reaction [Unknown]
  - Blindness [Not Recovered/Not Resolved]
  - Condition aggravated [Unknown]
  - Cataract [Unknown]
  - Weight increased [Unknown]
  - Drug ineffective [Unknown]
  - Asthma [Unknown]
  - Malaise [Unknown]
